FAERS Safety Report 6759957-6 (Version None)
Quarter: 2010Q2

REPORT INFORMATION
  Report Type: 
  Country: None (occurrence: None)
  Receive Date: 20100604
  Receipt Date: 20100521
  Transmission Date: 20101027
  Serious: Yes (Death)
  Sender: FDA-Public Use
  Company Number: 1-22757856

PATIENT
  Sex: Female

DRUGS (2)
  1. FENTANYL-75 [Suspect]
     Indication: PAIN
     Dosage: TRANSDERMAL
     Route: 062
  2. FENTANYL [Suspect]
     Indication: PAIN
     Dosage: 75 MCG/HR, TRANSDERMAL
     Route: 062
     Dates: start: 20080506, end: 20080513

REACTIONS (2)
  - MULTIPLE INJURIES [None]
  - NARCOTIC INTOXICATION [None]
